FAERS Safety Report 9993098 (Version 2)
Quarter: 2014Q2

REPORT INFORMATION
  Report Type: Report from Study
  Country: US (occurrence: US)
  Receive Date: 20140310
  Receipt Date: 20140407
  Transmission Date: 20141212
  Serious: Yes (Hospitalization)
  Sender: FDA-Public Use
  Company Number: US-ACTELION-A-US2014-95656

PATIENT
  Age: 54 Year
  Sex: Male

DRUGS (2)
  1. VELETRI [Suspect]
     Indication: COR PULMONALE CHRONIC
     Dosage: 61.5 NG/KG, PER MIN
     Route: 042
     Dates: start: 20111031
  2. OPSUMIT [Suspect]
     Indication: COR PULMONALE CHRONIC
     Dosage: 10 MG, UNK
     Route: 048
     Dates: start: 20140211

REACTIONS (2)
  - Device occlusion [Recovered/Resolved]
  - Medical device change [Recovered/Resolved]
